FAERS Safety Report 14079904 (Version 1)
Quarter: 2017Q4

REPORT INFORMATION
  Report Type: Spontaneous
  Country: US (occurrence: US)
  Receive Date: 20171012
  Receipt Date: 20171012
  Transmission Date: 20180321
  Serious: No
  Sender: FDA-Public Use
  Company Number: US-ELI_LILLY_AND_COMPANY-US201709005507

PATIENT
  Sex: Female

DRUGS (3)
  1. CYMBALTA [Suspect]
     Active Substance: DULOXETINE HYDROCHLORIDE
     Indication: PRODUCT USED FOR UNKNOWN INDICATION
     Dosage: UNK, UNKNOWN
     Route: 065
  2. CORGARD [Suspect]
     Active Substance: NADOLOL
     Indication: PRODUCT USED FOR UNKNOWN INDICATION
     Dosage: UNK, UNKNOWN
     Route: 065
  3. METOTREXATE [Suspect]
     Active Substance: METHOTREXATE SODIUM
     Indication: PRODUCT USED FOR UNKNOWN INDICATION
     Dosage: UNK, UNKNOWN
     Route: 065

REACTIONS (13)
  - Tenderness [Unknown]
  - Fibromyalgia [Unknown]
  - Condition aggravated [Unknown]
  - C-reactive protein increased [Unknown]
  - Back pain [Unknown]
  - Dizziness [Unknown]
  - Swelling [Unknown]
  - Akinesia [Unknown]
  - Arthralgia [Unknown]
  - Synovitis [Unknown]
  - Fatigue [Unknown]
  - Drug intolerance [Unknown]
  - Musculoskeletal stiffness [Unknown]
